FAERS Safety Report 7413380-X (Version None)
Quarter: 2011Q2

REPORT INFORMATION
  Report Type: 
  Country: None (occurrence: None)
  Receive Date: 20110413
  Receipt Date: 20110126
  Transmission Date: 20111010
  Serious: No
  Sender: FDA-Public Use
  Company Number: US-B.I. PHARMACEUTICALS,INC./RIDGEFIELD-2011-BP-02692BP

PATIENT
  Sex: Female

DRUGS (9)
  1. FOLIC ACID [Concomitant]
     Indication: PROPHYLAXIS
     Dosage: 1 MG
  2. FLURAZEPAM [Concomitant]
     Indication: INSOMNIA
  3. POTASSIUM-CL [Concomitant]
     Indication: PROPHYLAXIS
     Dosage: 20 MG
  4. PRADAXA [Suspect]
     Indication: ATRIAL FIBRILLATION
     Dosage: 300 MG
     Route: 048
     Dates: start: 20110111
  5. TIKOSYN [Concomitant]
     Indication: ATRIAL FIBRILLATION
  6. DILANTIN [Concomitant]
     Indication: EPILEPSY
  7. METOPROLOL TARTRATE [Concomitant]
     Indication: ATRIAL FIBRILLATION
  8. B1- VITAMIN [Concomitant]
     Indication: PROPHYLAXIS
  9. CITALOPRAM HYDROBROMIDE [Concomitant]
     Indication: ANXIETY
     Dosage: 20 MG

REACTIONS (2)
  - FAECES DISCOLOURED [None]
  - ASTHENIA [None]
